FAERS Safety Report 9679480 (Version 1)
Quarter: 2013Q4

REPORT INFORMATION
  Report Type: Spontaneous
  Country: US (occurrence: US)
  Receive Date: 20131109
  Receipt Date: 20131109
  Transmission Date: 20140711
  Serious: No
  Sender: FDA-Public Use
  Company Number: US-SANOFI-AVENTIS-2013SA054647

PATIENT
  Age: 47 Year
  Sex: Female

DRUGS (1)
  1. ALLEGRA-D [Suspect]

REACTIONS (2)
  - Oedema mouth [Recovered/Resolved]
  - Pruritus generalised [Recovered/Resolved]
